FAERS Safety Report 12249632 (Version 1)
Quarter: 2016Q2

REPORT INFORMATION
  Report Type: Report from Study
  Country: GR (occurrence: GR)
  Receive Date: 20160408
  Receipt Date: 20160408
  Transmission Date: 20160815
  Serious: Yes (Hospitalization)
  Sender: FDA-Public Use
  Company Number: GR-ABBVIE-16P-066-1598867-00

PATIENT
  Sex: Male
  Weight: 65 kg

DRUGS (1)
  1. DUODOPA [Suspect]
     Active Substance: CARBIDOPA\LEVODOPA
     Indication: PARKINSON^S DISEASE
     Dosage: MORNING DOSE: 7.9ML, CONTINUOUS RATE: 5ML/H, EXTRA DOSE: 2ML
     Route: 050
     Dates: start: 20140915

REACTIONS (4)
  - Osteomyelitis [Recovered/Resolved]
  - Communication disorder [Not Recovered/Not Resolved]
  - General physical health deterioration [Not Recovered/Not Resolved]
  - Decubitus ulcer [Not Recovered/Not Resolved]
